FAERS Safety Report 5310537-9 (Version None)
Quarter: 2007Q2

REPORT INFORMATION
  Report Type: 
  Country: None (occurrence: None)
  Receive Date: 20070427
  Receipt Date: 20070418
  Transmission Date: 20071010
  Serious: Yes (Other)
  Sender: FDA-Public Use
  Company Number: GB-MERCK-0704GBR00072

PATIENT
  Age: 37 Year
  Sex: Male

DRUGS (5)
  1. INVANZ [Suspect]
     Indication: DIABETIC ULCER
     Route: 042
     Dates: start: 20070329, end: 20070331
  2. PENICILLIN G [Concomitant]
     Indication: DIABETIC ULCER
     Route: 042
     Dates: start: 20070307, end: 20070329
  3. CLINDAMYCIN [Concomitant]
     Indication: DIABETIC ULCER
     Route: 048
     Dates: start: 20070319, end: 20070329
  4. FLOXACILLIN [Concomitant]
     Indication: DIABETIC ULCER
     Route: 042
     Dates: start: 20070307, end: 20070329
  5. METRONIDAZOLE [Concomitant]
     Indication: DIABETIC ULCER
     Route: 042
     Dates: start: 20070319, end: 20070329

REACTIONS (3)
  - HYPOTENSION [None]
  - LOSS OF CONSCIOUSNESS [None]
  - RASH MACULO-PAPULAR [None]
